FAERS Safety Report 9006148 (Version 1)
Quarter: 2013Q1

REPORT INFORMATION
  Report Type: Spontaneous
  Country: US (occurrence: US)
  Receive Date: 20130109
  Receipt Date: 20130109
  Transmission Date: 20140127
  Serious: No
  Sender: FDA-Public Use
  Company Number: US-009507513-1301USA001248

PATIENT
  Age: 80 None
  Sex: Female
  Weight: 53.52 kg

DRUGS (1)
  1. LISINOPRIL [Suspect]
     Dosage: UNK
     Route: 048
     Dates: start: 201208, end: 201209

REACTIONS (3)
  - Hypertension [Unknown]
  - Dyspnoea [Unknown]
  - Cough [Unknown]
